FAERS Safety Report 9276706 (Version 2)
Quarter: 2013Q3

REPORT INFORMATION
  Report Type: Report from Study
  Country: US (occurrence: US)
  Receive Date: 20130507
  Receipt Date: 20130721
  Transmission Date: 20140515
  Serious: Yes (Other)
  Sender: FDA-Public Use
  Company Number: PHEH2013US009882

PATIENT
  Age: 51 Year
  Sex: Female

DRUGS (5)
  1. GILENYA [Suspect]
     Indication: MULTIPLE SCLEROSIS
     Dosage: 0.5 MG, QD
     Route: 048
     Dates: start: 20111020, end: 20130424
  2. TRAMADOL [Concomitant]
  3. CHANTIX [Concomitant]
  4. ALPRAZOLAM [Concomitant]
  5. MULTI-VIT [Concomitant]

REACTIONS (2)
  - Central nervous system lesion [Unknown]
  - Drug ineffective [Unknown]
